FAERS Safety Report 20798024 (Version 1)
Quarter: 2022Q2

REPORT INFORMATION
  Report Type: Spontaneous
  Country: AT (occurrence: AT)
  Receive Date: 20220506
  Receipt Date: 20220506
  Transmission Date: 20220721
  Serious: Yes (Life-Threatening, Hospitalization)
  Sender: FDA-Public Use
  Company Number: AT-BAYER-2022A063901

PATIENT
  Age: 72 Year
  Sex: Female

DRUGS (11)
  1. XARELTO [Interacting]
     Active Substance: RIVAROXABAN
     Indication: Product used for unknown indication
     Route: 048
  2. ASPIRIN [Interacting]
     Active Substance: ASPIRIN
     Indication: Product used for unknown indication
     Route: 065
  3. CLOPIDOGREL [Interacting]
     Active Substance: CLOPIDOGREL BISULFATE
  4. TRAZODONE HYDROCHLORIDE [Interacting]
     Active Substance: TRAZODONE HYDROCHLORIDE
  5. ESCITALOPRAM [Interacting]
     Active Substance: ESCITALOPRAM OXALATE
  6. IBUPROFEN [Interacting]
     Active Substance: IBUPROFEN
     Indication: Back pain
  7. BISOPROLOL [Concomitant]
     Active Substance: BISOPROLOL
  8. LISINOPRIL [Concomitant]
     Active Substance: LISINOPRIL
  9. METFORMIN [Concomitant]
     Active Substance: METFORMIN HYDROCHLORIDE
  10. EMPAGLIFLOZIN [Concomitant]
     Active Substance: EMPAGLIFLOZIN
  11. ESOMEPRAZOLE [Concomitant]
     Active Substance: ESOMEPRAZOLE

REACTIONS (4)
  - Intestinal haemorrhage [Unknown]
  - Loss of consciousness [Unknown]
  - Labelled drug-drug interaction medication error [Unknown]
  - Potentiating drug interaction [Unknown]
